FAERS Safety Report 6426556-5 (Version None)
Quarter: 2009Q4

REPORT INFORMATION
  Report Type: 
  Country: None (occurrence: None)
  Receive Date: 20091030
  Receipt Date: 20091023
  Transmission Date: 20100525
  Serious: Yes (Life-Threatening, Hospitalization)
  Sender: FDA-Public Use
  Company Number: 2009SP030949

PATIENT
  Age: 26 Year
  Sex: Female

DRUGS (3)
  1. CELESTENE (BETAMETHASONE SODIUM PHOSPHATE) (BETAMETHASONE SODIUM PHOSP [Suspect]
     Indication: DRUG USE FOR UNKNOWN INDICATION
     Dates: start: 20090713
  2. NIFEDIPINE [Suspect]
     Indication: TOCOLYSIS
     Dosage: 20 MG; ONCE;
     Dates: start: 20090714, end: 20090715
  3. TRACTOCILE /01459601/ [Concomitant]

REACTIONS (7)
  - ACUTE PULMONARY OEDEMA [None]
  - ACUTE RESPIRATORY FAILURE [None]
  - CHEST PAIN [None]
  - DRUG EXPOSURE DURING PREGNANCY [None]
  - HAEMOPTYSIS [None]
  - ORTHOPNOEA [None]
  - TACHYCARDIA [None]
